FAERS Safety Report 4293932-9 (Version None)
Quarter: 2004Q1

REPORT INFORMATION
  Report Type: 
  Country: None (occurrence: None)
  Receive Date: 20040210
  Receipt Date: 20040203
  Transmission Date: 20041129
  Serious: Yes (Hospitalization)
  Sender: FDA-Public Use
  Company Number: 03OES007618

PATIENT
  Age: 60 Year
  Sex: Female

DRUGS (2)
  1. ESCLIM [Suspect]
     Dosage: TRANSDERMAL
     Route: 062
     Dates: end: 20030206
  2. ESTREVA (ESTRADIOL) [Concomitant]

REACTIONS (2)
  - CHOLESTASIS [None]
  - POST PROCEDURAL COMPLICATION [None]
